FAERS Safety Report 14765682 (Version 1)
Quarter: 2018Q2

REPORT INFORMATION
  Report Type: Spontaneous
  Country: BR (occurrence: BR)
  Receive Date: 20180416
  Receipt Date: 20180416
  Transmission Date: 20180711
  Serious: Yes (Other)
  Sender: FDA-Public Use
  Company Number: BR-PFIZER INC-2018147958

PATIENT
  Age: 60 Year
  Sex: Female

DRUGS (3)
  1. OPTIVE [Concomitant]
     Active Substance: CARBOXYMETHYLCELLULOSE SODIUM\GLYCERIN
     Indication: EYE LUBRICATION THERAPY
     Dosage: UNK, 3X/DAY
     Dates: start: 2006
  2. XALATAN [Suspect]
     Active Substance: LATANOPROST
     Dosage: 2 GTT, DAILY (ONE DROP IN EACH EYE)
  3. XALATAN [Suspect]
     Active Substance: LATANOPROST
     Dosage: 2 GTT, 2X/DAY AT 8 O^CLOCK AND AFTER 12 HOURS)

REACTIONS (2)
  - Product use issue [Unknown]
  - Visual impairment [Recovered/Resolved with Sequelae]
